FAERS Safety Report 6491750-4 (Version None)
Quarter: 2009Q4

REPORT INFORMATION
  Report Type: 
  Country: None (occurrence: None)
  Receive Date: 20091208
  Receipt Date: 20091125
  Transmission Date: 20100525
  Serious: Yes (Death, Other)
  Sender: FDA-Public Use
  Company Number: 2009-04795

PATIENT
  Age: 89 Year
  Sex: Male
  Weight: 64 kg

DRUGS (14)
  1. VELCADE [Suspect]
     Indication: MULTIPLE MYELOMA
     Dosage: 1.3 MG/M2, INTRAVENOUS
     Route: 042
     Dates: start: 20091006, end: 20091103
  2. DEXAMETHASONE TAB [Suspect]
     Indication: MULTIPLE MYELOMA
     Dosage: 72 MG, ORAL
     Route: 048
     Dates: start: 20091006
  3. BEHEPAN (CYANOCOBALAMIN) [Concomitant]
  4. EPOETIN ALFA (EPOETIN ALFA) [Concomitant]
  5. ATACAND PLUS (HYDROCHLOROTHIAZIDE, CANDESARTAN CILEXETIL) [Concomitant]
  6. EUSAPRIM FORTE (SULFAMETHOXAZOLE, TRIMETHOPRIM) [Concomitant]
  7. ACYCLOVIR [Concomitant]
  8. PAMIDRONATE DISODIUM [Concomitant]
  9. TIMOSAN (TIMOLOL MALEATE) [Concomitant]
  10. IMODIUM [Concomitant]
  11. METOPROLOL TARTRATE [Concomitant]
  12. BACTRIM [Concomitant]
  13. ACETAMINOPHEN [Concomitant]
  14. FLUNITRAZEPAM (FLUNITRAZEPAM) [Concomitant]

REACTIONS (10)
  - BODY TEMPERATURE DECREASED [None]
  - C-REACTIVE PROTEIN INCREASED [None]
  - CIRCULATORY COLLAPSE [None]
  - DEPRESSED LEVEL OF CONSCIOUSNESS [None]
  - DIARRHOEA [None]
  - FALL [None]
  - GASTROINTESTINAL HAEMORRHAGE [None]
  - INFECTION [None]
  - PLATELET COUNT DECREASED [None]
  - RENAL FAILURE [None]
